FAERS Safety Report 5069608-7 (Version None)
Quarter: 2006Q3

REPORT INFORMATION
  Report Type: 
  Country: None (occurrence: None)
  Receive Date: 20060803
  Receipt Date: 20060725
  Transmission Date: 20061208
  Serious: Yes (Death, Hospitalization, Other)
  Sender: FDA-Public Use
  Company Number: FR-BRISTOL-MYERS SQUIBB COMPANY-13459474

PATIENT
  Age: 37 Year
  Sex: Male

DRUGS (2)
  1. GLUCOPHAGE [Suspect]
     Route: 048
     Dates: start: 20051115, end: 20060704
  2. COZAAR [Suspect]
     Route: 048
     Dates: start: 20051115, end: 20060704

REACTIONS (7)
  - CARDIAC ARREST [None]
  - DEATH [None]
  - DEPRESSED LEVEL OF CONSCIOUSNESS [None]
  - HYPERKALAEMIA [None]
  - MELAENA [None]
  - RENAL FAILURE ACUTE [None]
  - VOMITING [None]
